FAERS Safety Report 4631460-9 (Version None)
Quarter: 2005Q2

REPORT INFORMATION
  Report Type: 
  Country: None (occurrence: None)
  Receive Date: 20050407
  Receipt Date: 20050325
  Transmission Date: 20051028
  Serious: Yes (Hospitalization)
  Sender: FDA-Public Use
  Company Number: HQWYE396917FEB05

PATIENT
  Age: 47 Year
  Sex: Male

DRUGS (8)
  1. AMIODARONE HCL [Suspect]
     Indication: CONGESTIVE CARDIOMYOPATHY
     Dosage: 100 MG 2X PER 1 DAY ORAL
     Route: 048
     Dates: start: 20020508, end: 20040423
  2. NU-LOTAN (LOSARTAN POTASSIUM) [Concomitant]
  3. LASIX [Concomitant]
  4. ALDACTONE [Concomitant]
  5. SLOW-K [Concomitant]
  6. WARFARIN SODIUM [Concomitant]
  7. LIVOSTIN [Concomitant]
  8. LANIRAPID (METILDIGOXIN) [Concomitant]

REACTIONS (2)
  - BLOOD LACTATE DEHYDROGENASE INCREASED [None]
  - EOSINOPHILIC PNEUMONIA [None]
